FAERS Safety Report 12389647 (Version 2)
Quarter: 2016Q2

REPORT INFORMATION
  Report Type: Spontaneous
  Country: FR (occurrence: FR)
  Receive Date: 20160520
  Receipt Date: 20160630
  Transmission Date: 20160815
  Serious: Yes (Hospitalization, Other)
  Sender: FDA-Public Use
  Company Number: FR-ABBVIE-16K-056-1631213-00

PATIENT
  Age: 50 Year
  Sex: Male
  Weight: 56 kg

DRUGS (1)
  1. HUMIRA [Suspect]
     Active Substance: ADALIMUMAB
     Indication: PSORIASIS
     Route: 058
     Dates: start: 201402

REACTIONS (3)
  - Diverticulitis [Recovered/Resolved]
  - Large intestine perforation [Recovered/Resolved]
  - Colonic abscess [Recovered/Resolved]

NARRATIVE: CASE EVENT DATE: 20160329
